FAERS Safety Report 9465774 (Version 2)
Quarter: 2013Q3

REPORT INFORMATION
  Report Type: Spontaneous
  Country: US (occurrence: US)
  Receive Date: 20130820
  Receipt Date: 20130820
  Transmission Date: 20140515
  Serious: No
  Sender: FDA-Public Use
  Company Number: US-MYLANLABS-2012S1013468

PATIENT
  Age: 72 Year
  Sex: Female

DRUGS (4)
  1. LIOTHYRONINE SODIUM TABLETS USP [Suspect]
     Indication: HYPOTHYROIDISM
     Route: 048
     Dates: start: 2012, end: 2012
  2. SYNTHROID [Concomitant]
  3. LISINOPRIL [Concomitant]
  4. HYDROCHLOROTHIAZIDE [Concomitant]

REACTIONS (3)
  - Dizziness [Recovered/Resolved]
  - Mental impairment [Recovered/Resolved]
  - Fatigue [Recovered/Resolved]
